FAERS Safety Report 16772704 (Version 2)
Quarter: 2019Q3

REPORT INFORMATION
  Report Type: Spontaneous
  Country: US (occurrence: US)
  Receive Date: 20190904
  Receipt Date: 20190910
  Transmission Date: 20191005
  Serious: No
  Sender: FDA-Public Use
  Company Number: US-BAYER-2019-157725

PATIENT
  Age: 60 Year
  Sex: Female

DRUGS (1)
  1. ANGELIQ [Suspect]
     Active Substance: DROSPIRENONE\ESTRADIOL
     Indication: MENOPAUSE
     Dosage: UNK, QD
     Route: 048
     Dates: start: 2014

REACTIONS (4)
  - Emotional distress [None]
  - Incorrect dose administered [Recovered/Resolved]
  - Therapeutic response unexpected [None]
  - Prescribed underdose [None]
